FAERS Safety Report 8579972 (Version 3)
Quarter: 2013Q1

REPORT INFORMATION
  Report Type: Spontaneous
  Country: US (occurrence: US)
  Receive Date: 20120525
  Receipt Date: 20130213
  Transmission Date: 20140127
  Serious: No
  Sender: FDA-Public Use
  Company Number: US-B.I. PHARMACEUTICALS,INC./RIDGEFIELD-2012-BP-10370BP

PATIENT
  Sex: Female

DRUGS (5)
  1. SPIRIVA [Suspect]
     Indication: CHRONIC OBSTRUCTIVE PULMONARY DISEASE
     Dosage: 18 MCG
     Route: 055
     Dates: start: 2010
  2. PROAIR [Concomitant]
     Indication: ASTHMA
     Route: 055
  3. LOSARTAN [Concomitant]
     Route: 048
  4. DIAZOXIDE [Concomitant]
     Indication: HYPOGLYCAEMIA
     Route: 048
  5. CELEXA [Concomitant]
     Indication: DEPRESSION
     Route: 048

REACTIONS (3)
  - Bronchitis [Not Recovered/Not Resolved]
  - Cough [Not Recovered/Not Resolved]
  - Dry mouth [Not Recovered/Not Resolved]
